FAERS Safety Report 25649560 (Version 1)
Quarter: 2025Q3

REPORT INFORMATION
  Report Type: Spontaneous
  Country: US (occurrence: None)
  Receive Date: 20250805
  Receipt Date: 20250805
  Transmission Date: 20251021
  Serious: Yes (Other)
  Sender: FDA-CTU
  Company Number: None

PATIENT
  Age: 57 Year
  Sex: Female

DRUGS (1)
  1. VERZENIO [Suspect]
     Active Substance: ABEMACICLIB

REACTIONS (3)
  - Diarrhoea [None]
  - Therapy cessation [None]
  - Activities of daily living decreased [None]

NARRATIVE: CASE EVENT DATE: 20250729
